FAERS Safety Report 14780275 (Version 1)
Quarter: 2018Q2

REPORT INFORMATION
  Report Type: Spontaneous
  Country: ES (occurrence: ES)
  Receive Date: 20180419
  Receipt Date: 20180419
  Transmission Date: 20180711
  Serious: Yes (Other)
  Sender: FDA-Public Use
  Company Number: ES-PFIZER INC-2018159787

PATIENT
  Age: 34 Year
  Sex: Female
  Weight: 96.8 kg

DRUGS (1)
  1. LOETTE DIARIO [Suspect]
     Active Substance: ETHINYL ESTRADIOL\LEVONORGESTREL
     Indication: DYSMENORRHOEA
     Dosage: 1 DF, 1X/DAY (1 TABLET 1X/DAY, EVERY 24 HOURS)
     Route: 048
     Dates: start: 20170208, end: 20180210

REACTIONS (2)
  - Pyrexia [Recovered/Resolved]
  - Product use in unapproved indication [Recovered/Resolved]

NARRATIVE: CASE EVENT DATE: 20170208
